FAERS Safety Report 7207953-7 (Version None)
Quarter: 2010Q4

REPORT INFORMATION
  Report Type: 
  Country: None (occurrence: None)
  Receive Date: 20101221
  Receipt Date: 20101209
  Transmission Date: 20110411
  Serious: Yes (Hospitalization)
  Sender: FDA-Public Use
  Company Number: 774856

PATIENT
  Age: 73 Year
  Sex: Female

DRUGS (1)
  1. HEPARN SODIUM IN SODIUM CHLORIDE INJ. IN FLEX. CONT. (HEPARIN SODIUM) [Suspect]
     Indication: PRODUCT USED FOR UNKNOWN INDICATION
     Dates: start: 20071108, end: 20071111

REACTIONS (8)
  - ARTERIOSCLEROSIS [None]
  - FOOT AMPUTATION [None]
  - GANGRENE [None]
  - HYPERGLYCAEMIA [None]
  - HYPERTENSION [None]
  - INTERMITTENT CLAUDICATION [None]
  - LEUKOCYTOSIS [None]
  - RECTAL HAEMORRHAGE [None]
